FAERS Safety Report 10028540 (Version 1)
Quarter: 2014Q1

REPORT INFORMATION
  Report Type: Spontaneous
  Country: CA (occurrence: CA)
  Receive Date: 20140321
  Receipt Date: 20140321
  Transmission Date: 20141002
  Serious: Yes (Death, Hospitalization)
  Sender: FDA-Public Use
  Company Number: CA-PFIZER INC-2014080776

PATIENT
  Age: 75 Year
  Sex: Male

DRUGS (4)
  1. HEPARIN SODIUM [Suspect]
     Dosage: UNK
     Route: 042
     Dates: start: 20120517, end: 20120522
  2. HEPARIN SODIUM [Suspect]
     Dosage: UNK
     Route: 042
     Dates: start: 20121007
  3. FRAGMIN [Suspect]
     Dosage: UNK
     Route: 058
     Dates: start: 2012
  4. ARGATROBAN [Concomitant]

REACTIONS (2)
  - Penile necrosis [Fatal]
  - Heparin-induced thrombocytopenia [Unknown]
